FAERS Safety Report 19205259 (Version 1)
Quarter: 2021Q2

REPORT INFORMATION
  Report Type: Spontaneous
  Country: US (occurrence: US)
  Receive Date: 20210502
  Receipt Date: 20210502
  Transmission Date: 20210717
  Serious: Yes (Life-Threatening, Hospitalization, Other)
  Sender: FDA-Public Use
  Company Number: None

PATIENT
  Age: 53 Year
  Sex: Female

DRUGS (6)
  1. PROF WHYTE^S CALM KRATOM [Suspect]
     Active Substance: HERBALS\MITRAGYNINE
     Indication: DEPRESSION
     Dosage: ?          QUANTITY:200 CAPSULE(S);?
     Route: 048
  2. PROF WHYTE^S CALM KRATOM [Suspect]
     Active Substance: HERBALS\MITRAGYNINE
     Indication: DRUG DEPENDENCE
     Dosage: ?          QUANTITY:200 CAPSULE(S);?
     Route: 048
  3. PAXIL [Suspect]
     Active Substance: PAROXETINE HYDROCHLORIDE
  4. PROF WHYTE^S CALM KRATOM [Suspect]
     Active Substance: HERBALS\MITRAGYNINE
     Indication: ANXIETY
     Dosage: ?          QUANTITY:200 CAPSULE(S);?
     Route: 048
  5. TIZANIDINE. [Concomitant]
     Active Substance: TIZANIDINE
  6. EFFEXOR [Concomitant]
     Active Substance: VENLAFAXINE HYDROCHLORIDE

REACTIONS (3)
  - Heart rate increased [None]
  - Hallucination [None]
  - Seizure [None]

NARRATIVE: CASE EVENT DATE: 20210427
